FAERS Safety Report 4895569-7 (Version None)
Quarter: 2006Q1

REPORT INFORMATION
  Report Type: 
  Country: None (occurrence: None)
  Receive Date: 20060125
  Receipt Date: 20060116
  Transmission Date: 20060701
  Serious: Yes (Hospitalization)
  Sender: FDA-Public Use
  Company Number: USA-2002-004115

PATIENT
  Age: 75 Year
  Sex: Male
  Weight: 86 kg

DRUGS (13)
  1. SOTALOL HCL [Suspect]
     Dates: end: 20020828
  2. AD5FGF-4 VS PLACEBO (HUMAN FGF-4 GENE) [Suspect]
     Indication: ANGINA PECTORIS
     Dosage: SEE IMAGE
     Dates: start: 20011220, end: 20011220
  3. AMIODARONE HCL [Suspect]
     Indication: ARRHYTHMIA
     Dosage: SEE IMAGE
     Dates: start: 20020829
  4. AMIODARONE HCL [Suspect]
     Indication: PROPHYLAXIS
     Dosage: SEE IMAGE
     Dates: start: 20020829
  5. AMIODARONE HCL [Suspect]
     Indication: ARRHYTHMIA
     Dosage: SEE IMAGE
     Dates: start: 20020831
  6. AMIODARONE HCL [Suspect]
     Indication: PROPHYLAXIS
     Dosage: SEE IMAGE
     Dates: start: 20020831
  7. ASPIRIN [Concomitant]
  8. PLAVIX [Concomitant]
  9. DIGOXIN [Concomitant]
  10. FOSINOPRIL SODIUM [Concomitant]
  11. IMDUR [Concomitant]
  12. NIACIN [Concomitant]
  13. LOPRESSOR [Concomitant]

REACTIONS (4)
  - ACUTE MYOCARDIAL INFARCTION [None]
  - DRUG INTERACTION [None]
  - TORSADE DE POINTES [None]
  - VENTRICULAR FIBRILLATION [None]
